FAERS Safety Report 23061221 (Version 2)
Quarter: 2023Q4

REPORT INFORMATION
  Report Type: Report from Study
  Country: US (occurrence: US)
  Receive Date: 20231013
  Receipt Date: 20231101
  Transmission Date: 20240110
  Serious: Yes (Hospitalization)
  Sender: FDA-Public Use
  Company Number: US-Accord-383894

PATIENT
  Age: 50 Year
  Sex: Female
  Weight: 107.5 kg

DRUGS (3)
  1. CLOZAPINE [Suspect]
     Active Substance: CLOZAPINE
     Indication: Depression
     Dosage: 50MG, ORAL, EVERY MORNING AND 250MG, ORAL, EVERY NIGHT
     Route: 048
  2. HALOPERIDOL [Concomitant]
     Active Substance: HALOPERIDOL
     Indication: Paranoia
     Route: 048
  3. VENLAFAXINE [Concomitant]
     Active Substance: VENLAFAXINE HYDROCHLORIDE

REACTIONS (1)
  - Major depression [Unknown]

NARRATIVE: CASE EVENT DATE: 20230925
